FAERS Safety Report 8624144-3 (Version None)
Quarter: 2012Q3

REPORT INFORMATION
  Report Type: 
  Country: None (occurrence: None)
  Receive Date: 20120824
  Receipt Date: 20120824
  Transmission Date: 20120928
  Serious: Yes (Life-Threatening)
  Sender: FDA-Public Use
  Company Number: None

PATIENT
  Age: 61 Year
  Sex: Female

DRUGS (1)
  1. REMICADE [Suspect]
     Dosage: 285 MG Q8WEEKS IV
     Route: 042
     Dates: start: 20120425, end: 20120712

REACTIONS (1)
  - ANAPHYLACTIC SHOCK [None]
